FAERS Safety Report 8391989-7 (Version None)
Quarter: 2012Q2

REPORT INFORMATION
  Report Type: 
  Country: None (occurrence: None)
  Receive Date: 20120529
  Receipt Date: 20120524
  Transmission Date: 20120825
  Serious: Yes (Hospitalization)
  Sender: FDA-Public Use
  Company Number: US-ROCHE-1072369

PATIENT
  Sex: Female

DRUGS (7)
  1. ADVAIR DISKUS 100/50 [Concomitant]
  2. ALBUTEROL [Concomitant]
  3. NEBULIZER (UNKNOWN DRUG) [Concomitant]
  4. PEGASYS [Suspect]
     Indication: HEPATITIS C
  5. RIBAVIRIN [Suspect]
     Indication: HEPATITIS C
  6. AZOR (UNITED STATES) [Concomitant]
  7. TELAPREVIR [Suspect]
     Indication: HEPATITIS C

REACTIONS (5)
  - FEELING OF BODY TEMPERATURE CHANGE [None]
  - DIZZINESS [None]
  - ASTHENIA [None]
  - SYNCOPE [None]
  - ASTHMA [None]
